FAERS Safety Report 16383136 (Version 1)
Quarter: 2019Q2

REPORT INFORMATION
  Report Type: Spontaneous
  Country: US (occurrence: US)
  Receive Date: 20190509
  Receipt Date: 20190509
  Transmission Date: 20190711
  Serious: Yes (Disabling)
  Sender: FDA-Public Use
  Company Number: None

PATIENT
  Age: 35 Year
  Sex: Male
  Weight: 94.5 kg

DRUGS (2)
  1. PROPRANOLOL ER [Suspect]
     Active Substance: PROPRANOLOL HYDROCHLORIDE
     Indication: HYPERHIDROSIS
     Dosage: ?          QUANTITY:1 CAPSULE(S);?
     Route: 048
     Dates: start: 20190501
  2. PROPRANOLOL ER [Suspect]
     Active Substance: PROPRANOLOL HYDROCHLORIDE
     Indication: MIGRAINE
     Dosage: ?          QUANTITY:1 CAPSULE(S);?
     Route: 048
     Dates: start: 20190501

REACTIONS (2)
  - Treatment failure [None]
  - Product quality issue [None]

NARRATIVE: CASE EVENT DATE: 20190501
